FAERS Safety Report 10887609 (Version 1)
Quarter: 2015Q1

REPORT INFORMATION
  Report Type: Spontaneous
  Country: US (occurrence: US)
  Receive Date: 20150304
  Receipt Date: 20150304
  Transmission Date: 20150721
  Serious: Yes (Other)
  Sender: FDA-Public Use
  Company Number: US-AMGEN-USASP2014037411

PATIENT
  Age: 58 Year
  Sex: Female
  Weight: 73.47 kg

DRUGS (5)
  1. ESTROGEL [Concomitant]
     Active Substance: ESTRADIOL
     Dosage: UNK
  2. PLAQUENIL [Concomitant]
     Active Substance: HYDROXYCHLOROQUINE SULFATE
     Dosage: 200 MG, UNK
  3. FOLIC ACID. [Concomitant]
     Active Substance: FOLIC ACID
     Dosage: 20 MG, UNK
  4. ENBREL [Suspect]
     Active Substance: ETANERCEPT
     Indication: PRODUCT USED FOR UNKNOWN INDICATION
     Dosage: 50 MG, QWK
     Route: 058
  5. METHYLPHENIDAT [Concomitant]
     Active Substance: METHYLPHENIDATE
     Dosage: 20 MG, UNK

REACTIONS (1)
  - Rheumatoid arthritis [Unknown]
